FAERS Safety Report 22034808 (Version 2)
Quarter: 2023Q1

REPORT INFORMATION
  Report Type: Report from Study
  Country: IL (occurrence: IL)
  Receive Date: 20230224
  Receipt Date: 20230309
  Transmission Date: 20230417
  Serious: No
  Sender: FDA-Public Use
  Company Number: IL-Ipsen Biopharmaceuticals, Inc.-2023-00215

PATIENT
  Age: 50 Year
  Sex: Female

DRUGS (1)
  1. DYSPORT [Suspect]
     Active Substance: ABOBOTULINUMTOXINA
     Indication: Skin cosmetic procedure
     Dosage: SINGLE CYCLE
     Route: 065

REACTIONS (1)
  - Eyelid ptosis [Unknown]
